FAERS Safety Report 9744876 (Version 5)
Quarter: 2014Q2

REPORT INFORMATION
  Report Type: Spontaneous
  Country: US (occurrence: US)
  Receive Date: 20131211
  Receipt Date: 20140422
  Transmission Date: 20141212
  Serious: Yes (Hospitalization, Other)
  Sender: FDA-Public Use
  Company Number: US-BEH-2012033487

PATIENT
  Age: 37 Year
  Sex: Female
  Weight: 87 kg

DRUGS (37)
  1. PRIVIGEN [Suspect]
     Indication: IMMUNODEFICIENCY COMMON VARIABLE
     Dosage: AT MAX RATE OF 250 ML PER HOUR FOR 3 HOURS
     Route: 042
  2. PRIVIGEN [Suspect]
     Dosage: AT MAX RATE OF 250 ML PER HOUR FOR 3 HOURS
     Route: 042
     Dates: start: 20120908, end: 20120908
  3. PRIVIGEN [Suspect]
     Dosage: MAX RATE OF 250 ML PER HOUR
     Route: 042
  4. PRIVIGEN [Suspect]
     Dosage: BEGIN AT 47 ML/HR, DOUBLE INFUSION RATE EVERY 15-30 MINUTES UNTIL MAX OF 250 ML/HR IS REACHED.
     Route: 042
  5. PRIVIGEN [Suspect]
     Route: 042
  6. PRIVIGEN [Suspect]
     Route: 042
  7. PRIVIGEN [Suspect]
     Route: 042
  8. PRIVIGEN [Suspect]
     Route: 042
  9. PRIVIGEN [Suspect]
     Route: 042
  10. PRIVIGEN [Suspect]
     Dosage: 20 GM VIAL
     Route: 042
  11. PRIVIGEN [Suspect]
     Route: 042
  12. PRIVIGEN [Suspect]
     Route: 042
     Dates: start: 20131116, end: 20131116
  13. PRIVIGEN [Suspect]
     Dosage: 20 GM VIAL
     Route: 042
  14. ACETAMINOPHEN [Concomitant]
  15. DIPHENHYDRAMINE [Concomitant]
     Indication: PREMEDICATION
  16. HEPARIN [Concomitant]
  17. LIDOCAINE/PRILOCAINE [Concomitant]
     Indication: PREMEDICATION
  18. SODIUM CHLORIDE [Concomitant]
     Indication: PREMEDICATION
  19. EPI PEN [Concomitant]
     Indication: PREMEDICATION
  20. CYMBALTA [Concomitant]
  21. DICLOFENAC [Concomitant]
  22. KLONOPIN [Concomitant]
  23. AXERT [Concomitant]
  24. NORVASC [Concomitant]
  25. ALBUTEROL [Concomitant]
  26. DILAUDID [Concomitant]
  27. AUGMENTIN [Concomitant]
  28. VITAMIN E [Concomitant]
  29. ZIAC [Concomitant]
     Dosage: 5-6.25 MG TAB
  30. REQUIP [Concomitant]
  31. PLAQUENIL [Concomitant]
  32. CYANOCOBALAMIN [Concomitant]
     Dosage: 1000 MCG/ML
  33. VITAMIN B6 [Concomitant]
  34. VITAMIN D3 [Concomitant]
  35. CEFDINIR [Concomitant]
  36. ZITHROMAX [Concomitant]
  37. SINGULAIR [Concomitant]

REACTIONS (24)
  - Multiple sclerosis [Unknown]
  - Abasia [Unknown]
  - Pneumonia [Unknown]
  - Sinusitis [Unknown]
  - Vaccination complication [Unknown]
  - Migraine [Unknown]
  - Influenza [Recovered/Resolved]
  - Eye infection [Unknown]
  - Ear infection [Unknown]
  - Rhinitis [Unknown]
  - Pharyngitis [Unknown]
  - Sinusitis [Unknown]
  - Tremor [Unknown]
  - Impaired work ability [Unknown]
  - Asthenia [Unknown]
  - Fatigue [Unknown]
  - Headache [Unknown]
  - Sinusitis [Unknown]
  - Respiratory tract congestion [Unknown]
  - Paralysis [Unknown]
  - Back pain [Unknown]
  - Impaired work ability [Unknown]
  - Sinusitis [Unknown]
  - Upper respiratory tract infection [Unknown]
